FAERS Safety Report 13678875 (Version 1)
Quarter: 2017Q2

REPORT INFORMATION
  Report Type: Spontaneous
  Country: GB (occurrence: GB)
  Receive Date: 20170622
  Receipt Date: 20170622
  Transmission Date: 20170830
  Serious: Yes (Hospitalization)
  Sender: FDA-Public Use
  Company Number: GB-AMGEN-GBRSP2017092860

PATIENT
  Age: 90 Year
  Sex: Female
  Weight: 66.7 kg

DRUGS (12)
  1. PROLIA [Suspect]
     Active Substance: DENOSUMAB
     Indication: OSTEOPOROSIS PROPHYLAXIS
     Dosage: 60 MG, Q6MO
     Route: 058
     Dates: start: 20170510
  2. GLUCOSAMINE [Concomitant]
     Active Substance: GLUCOSAMINE
  3. NICORANDIL [Concomitant]
     Active Substance: NICORANDIL
  4. OMEPRAZOLE. [Concomitant]
     Active Substance: OMEPRAZOLE
  5. ASPIRIN. [Concomitant]
     Active Substance: ASPIRIN
  6. COD LIVER OIL [Concomitant]
     Active Substance: COD LIVER OIL
  7. GLICLAZIDE [Concomitant]
     Active Substance: GLICLAZIDE
  8. ISOSORBIDE MONONITRATE. [Concomitant]
     Active Substance: ISOSORBIDE MONONITRATE
  9. ADCAL D3 [Concomitant]
     Active Substance: CALCIUM CARBONATE\CHOLECALCIFEROL
  10. FUROSEMIDE. [Concomitant]
     Active Substance: FUROSEMIDE
  11. SIMVASTATIN. [Concomitant]
     Active Substance: SIMVASTATIN
  12. SPIRONOLACTONE. [Concomitant]
     Active Substance: SPIRONOLACTONE

REACTIONS (4)
  - Musculoskeletal pain [Unknown]
  - Chills [Unknown]
  - Inflammatory marker increased [Unknown]
  - Septic arthritis streptococcal [Not Recovered/Not Resolved]

NARRATIVE: CASE EVENT DATE: 20170531
